FAERS Safety Report 19071926 (Version 2)
Quarter: 2021Q2

REPORT INFORMATION
  Report Type: Spontaneous
  Country: CA (occurrence: CA)
  Receive Date: 20210330
  Receipt Date: 20210409
  Transmission Date: 20210717
  Serious: Yes (Other)
  Sender: FDA-Public Use
  Company Number: CA-BAYER-2021-109885

PATIENT
  Age: 70 Year
  Sex: Male

DRUGS (4)
  1. RESTORALAX [Suspect]
     Active Substance: POLYETHYLENE GLYCOL 3350
     Indication: CONSTIPATION
     Dosage: 1 DF, QD
     Dates: start: 20200115
  2. BENZYDAMINE [Concomitant]
     Active Substance: BENZYDAMINE
  3. SYMBICORT [Concomitant]
     Active Substance: BUDESONIDE\FORMOTEROL FUMARATE DIHYDRATE
  4. AMOXICILLIN. [Concomitant]
     Active Substance: AMOXICILLIN

REACTIONS (8)
  - Oropharyngeal pain [Not Recovered/Not Resolved]
  - Tracheal stenosis [Not Recovered/Not Resolved]
  - Lymphadenopathy [Not Recovered/Not Resolved]
  - Ear pain [Not Recovered/Not Resolved]
  - Tonsillar inflammation [Not Recovered/Not Resolved]
  - Bacterial infection [None]
  - Productive cough [Not Recovered/Not Resolved]
  - Product commingling [Not Recovered/Not Resolved]

NARRATIVE: CASE EVENT DATE: 20210227
